FAERS Safety Report 5284545-0 (Version None)
Quarter: 2007Q2

REPORT INFORMATION
  Report Type: 
  Country: None (occurrence: None)
  Receive Date: 20070403
  Receipt Date: 20070330
  Transmission Date: 20071010
  Serious: Yes (Other)
  Sender: FDA-Public Use
  Company Number: JP-JPN-A200700820

PATIENT
  Age: 13 Year
  Sex: Male

DRUGS (2)
  1. RELENZA [Suspect]
     Indication: INFLUENZA
     Dosage: 10MG PER DAY
     Route: 055
     Dates: start: 20070226, end: 20070228
  2. CALONAL [Concomitant]
     Indication: INFLUENZA
     Route: 048
     Dates: start: 20070226, end: 20070228

REACTIONS (5)
  - ABNORMAL BEHAVIOUR [None]
  - DEPRESSED LEVEL OF CONSCIOUSNESS [None]
  - SLEEP TALKING [None]
  - SPEECH DISORDER [None]
  - THIRST [None]
